FAERS Safety Report 11505582 (Version 1)
Quarter: 2015Q3

REPORT INFORMATION
  Report Type: Spontaneous
  Country: US (occurrence: US)
  Receive Date: 20150915
  Receipt Date: 20150915
  Transmission Date: 20151125
  Serious: No
  Sender: FDA-Public Use
  Company Number: US-ROCHE-776287

PATIENT
  Age: 45 Year
  Sex: Male

DRUGS (2)
  1. PEGASYS [Suspect]
     Active Substance: PEGINTERFERON ALFA-2A
     Indication: HEPATITIS C
     Dosage: FORM: PRE-FILLED SYRINGE
     Route: 065
  2. RIBAVIRIN. [Suspect]
     Active Substance: RIBAVIRIN
     Indication: HEPATITIS C
     Dosage: FORM: PILL
     Route: 065

REACTIONS (8)
  - Urticaria [Recovered/Resolved]
  - Hyperhidrosis [Unknown]
  - Rash [Unknown]
  - Heart rate increased [Unknown]
  - Chills [Unknown]
  - Headache [Unknown]
  - Pruritus [Unknown]
  - Lip swelling [Unknown]

NARRATIVE: CASE EVENT DATE: 20110507
